FAERS Safety Report 19122959 (Version 31)
Quarter: 2022Q2

REPORT INFORMATION
  Report Type: Other
  Country: GB (occurrence: GB)
  Receive Date: 20210412
  Receipt Date: 20220613
  Transmission Date: 20220721
  Serious: Yes (Hospitalization, Disabling, Other)
  Sender: FDA-Public Use
  Company Number: None

PATIENT
  Age: 24 Year
  Sex: Male

DRUGS (29)
  1. SERTRALINE [Suspect]
     Active Substance: SERTRALINE HYDROCHLORIDE
     Indication: Antidepressant therapy
     Dosage: 50 MG (UNKNOWN)
     Route: 048
  2. SERTRALINE [Suspect]
     Active Substance: SERTRALINE HYDROCHLORIDE
     Indication: Homicidal ideation
     Dosage: 50 MILLIGRAM, INITALLY
     Route: 048
     Dates: start: 2014
  3. SERTRALINE [Suspect]
     Active Substance: SERTRALINE HYDROCHLORIDE
     Dosage: 100 MILLIGRAM
     Route: 048
     Dates: start: 2014
  4. SERTRALINE [Suspect]
     Active Substance: SERTRALINE HYDROCHLORIDE
     Dosage: UNK
     Route: 065
  5. TEMAZEPAM [Suspect]
     Active Substance: TEMAZEPAM
     Indication: Poor quality sleep
     Dosage: 10 MILLIGRAM, QD (ORAL SOLUTION)
     Route: 048
  6. TEMAZEPAM [Suspect]
     Active Substance: TEMAZEPAM
     Dosage: 10 MILLIGRAM, QD (ORAL SOLUTION)
     Route: 048
  7. RISPERIDONE [Suspect]
     Active Substance: RISPERIDONE
     Indication: Ill-defined disorder
     Dosage: UNK
     Route: 065
  8. RISPERIDONE [Suspect]
     Active Substance: RISPERIDONE
     Indication: Physical disability
     Dosage: UNK
     Route: 048
  9. MIRTAZAPINE [Suspect]
     Active Substance: MIRTAZAPINE
     Indication: Antidepressant therapy
     Dosage: 7.5 MILLIGRAM (7.5MG - UPTITRATED TO 45MG DAILY THEN REDUCED DOWN TO STOP)
     Route: 048
     Dates: start: 2014, end: 2015
  10. MIRTAZAPINE [Suspect]
     Active Substance: MIRTAZAPINE
     Dosage: 45 MILLIGRAM (7.5MG - UPTITRATED TO 45MG DAILY THEN REDUCED DOWN TO STOP)
     Route: 048
     Dates: start: 2014, end: 2015
  11. CITALOPRAM [Suspect]
     Active Substance: CITALOPRAM HYDROBROMIDE
     Indication: Ill-defined disorder
     Dosage: 10 MILLIGRAM INITIALLY, ORAL SOLUTION
     Route: 048
     Dates: start: 201507, end: 201509
  12. CITALOPRAM [Suspect]
     Active Substance: CITALOPRAM HYDROBROMIDE
     Indication: Headache
     Dosage: 10 MG (UNIT DOSE)
     Route: 048
  13. CITALOPRAM [Suspect]
     Active Substance: CITALOPRAM HYDROBROMIDE
     Dosage: 10 MG (UNKNOWN)
     Route: 048
  14. TRAZODONE [Suspect]
     Active Substance: TRAZODONE HYDROCHLORIDE
     Indication: Antidepressant therapy
     Dosage: 50 MILLIGRAM (50MG INITAILLY INCREASED TO 100MG DAILY THEN REDUCED TO 50MG BEFORE STOPPING)
     Route: 048
     Dates: start: 2015, end: 201507
  15. TRAZODONE [Suspect]
     Active Substance: TRAZODONE HYDROCHLORIDE
     Indication: Poor quality sleep
     Dosage: 100 MILLIGRAM, QD (100 MG, QD (INCREASED TO 100MG DAILY) TABLET
     Route: 048
     Dates: start: 2015, end: 201507
  16. TRAZODONE [Suspect]
     Active Substance: TRAZODONE HYDROCHLORIDE
     Dosage: 50 MG, QD
     Route: 048
  17. TRAZODONE [Suspect]
     Active Substance: TRAZODONE HYDROCHLORIDE
     Dosage: 50 MILLIGRAM
     Route: 048
     Dates: start: 2015, end: 201507
  18. TRAZODONE [Suspect]
     Active Substance: TRAZODONE HYDROCHLORIDE
     Dosage: 100 MILLIGRAM
     Route: 048
  19. TRAZODONE [Suspect]
     Active Substance: TRAZODONE HYDROCHLORIDE
     Dosage: 50 MILLIGRAM, QD
     Route: 048
     Dates: start: 2015, end: 201507
  20. TRAZODONE [Suspect]
     Active Substance: TRAZODONE HYDROCHLORIDE
     Dosage: 100 MILLIGRAM, QD
     Route: 048
     Dates: start: 2015, end: 201507
  21. TRAZODONE [Suspect]
     Active Substance: TRAZODONE HYDROCHLORIDE
     Dosage: 10 MG, QD
     Route: 048
  22. CIPRALEX [Suspect]
     Active Substance: ESCITALOPRAM OXALATE
     Indication: Antidepressant therapy
     Dosage: 10 MILLIGRAM, QD
     Route: 048
     Dates: start: 201507, end: 201509
  23. CIPRALEX [Suspect]
     Active Substance: ESCITALOPRAM OXALATE
     Dosage: 10 MILLIGRAM, QD
     Route: 065
     Dates: start: 201509, end: 201509
  24. CIPRALEX [Suspect]
     Active Substance: ESCITALOPRAM OXALATE
     Dosage: UNK
     Route: 065
     Dates: start: 201507, end: 201509
  25. CIPRALEX [Suspect]
     Active Substance: ESCITALOPRAM OXALATE
     Dosage: 10 MILLIGRAM, QD
     Route: 048
     Dates: end: 201509
  26. CIPRALEX [Suspect]
     Active Substance: ESCITALOPRAM OXALATE
     Dosage: 10 MILLIGRAM, QD
     Route: 048
     Dates: start: 201507, end: 201509
  27. RISPERDAL [Suspect]
     Active Substance: RISPERIDONE
     Indication: Physical disability
     Dosage: UNK
     Route: 048
  28. RISPERDAL [Suspect]
     Active Substance: RISPERIDONE
     Indication: Ill-defined disorder
  29. SERTRALINE HYDROCHLORIDE [Concomitant]
     Active Substance: SERTRALINE HYDROCHLORIDE
     Indication: Antidepressant therapy
     Dosage: 50 MILLIGRAM, INITIALLLY
     Route: 048
     Dates: start: 2014

REACTIONS (26)
  - Somnolence [Unknown]
  - Agitation [Unknown]
  - Suicidal ideation [Unknown]
  - Anger [Unknown]
  - Homicidal ideation [Unknown]
  - Mood swings [Unknown]
  - Suicide attempt [Unknown]
  - Hallucination, visual [Unknown]
  - Hallucination, auditory [Unknown]
  - Paranoia [Unknown]
  - Insomnia [Unknown]
  - Product use in unapproved indication [Unknown]
  - Loss of libido [Unknown]
  - Tachyphrenia [Unknown]
  - Irritability [Unknown]
  - Psychotic disorder [Unknown]
  - Aggression [Unknown]
  - Feeling abnormal [Unknown]
  - Headache [Unknown]
  - Nausea [Unknown]
  - Confusional state [Unknown]
  - Amnesia [Unknown]
  - Sedation [Unknown]
  - Off label use [Unknown]
  - Withdrawal syndrome [Unknown]
  - Intrusive thoughts [Unknown]
